FAERS Safety Report 7032105-3 (Version None)
Quarter: 2010Q4

REPORT INFORMATION
  Report Type: 
  Country: None (occurrence: None)
  Receive Date: 20101007
  Receipt Date: 20101001
  Transmission Date: 20110411
  Serious: Yes (Hospitalization)
  Sender: FDA-Public Use
  Company Number: US-BRISTOL-MYERS SQUIBB COMPANY-15278922

PATIENT
  Age: 72 Year
  Sex: Male
  Weight: 92 kg

DRUGS (8)
  1. DASATINIB [Suspect]
     Indication: NON-SMALL CELL LUNG CANCER
     Route: 048
     Dates: start: 20100813, end: 20100917
  2. FLOMAX [Concomitant]
     Route: 048
  3. PRILOSEC [Concomitant]
     Route: 048
  4. ALBUTEROL [Concomitant]
     Dosage: 1 DF:2 PUFFS
     Route: 055
  5. MESALAMINE [Concomitant]
     Route: 048
  6. PREDNISONE [Concomitant]
     Route: 048
  7. PERCOCET [Concomitant]
     Dosage: Q4H
  8. VALACYCLOVIR [Concomitant]

REACTIONS (8)
  - CHEST DISCOMFORT [None]
  - COUGH [None]
  - DECREASED APPETITE [None]
  - DEHYDRATION [None]
  - DYSPNOEA [None]
  - FAILURE TO THRIVE [None]
  - FATIGUE [None]
  - OCULAR HYPERAEMIA [None]
